FAERS Safety Report 4573879-0 (Version None)
Quarter: 2005Q1

REPORT INFORMATION
  Report Type: 
  Country: None (occurrence: None)
  Receive Date: 20050203
  Receipt Date: 20050124
  Transmission Date: 20050727
  Serious: No
  Sender: FDA-Public Use
  Company Number: 2005UW01223

PATIENT

DRUGS (2)
  1. CRESTOR [Suspect]
  2. PRIMIDONE [Concomitant]

REACTIONS (1)
  - CONVULSION [None]
